FAERS Safety Report 7562051-8 (Version None)
Quarter: 2011Q2

REPORT INFORMATION
  Report Type: 
  Country: None (occurrence: None)
  Receive Date: 20110622
  Receipt Date: 20101208
  Transmission Date: 20111010
  Serious: Yes (Other)
  Sender: FDA-Public Use
  Company Number: PHHY2010DE92232

PATIENT
  Age: 60 Year
  Sex: Male

DRUGS (3)
  1. ACETYL SALICYLIC ACID COMPOUND TAB [Concomitant]
  2. CHEMOTHERAPEUTICS NOS [Concomitant]
     Indication: PROSTATE CANCER METASTATIC
  3. ZOLEDRONIC ACID [Suspect]
     Indication: PROSTATE CANCER METASTATIC
     Dosage: UNK UKN, UNK
     Route: 042

REACTIONS (1)
  - OSTEONECROSIS OF JAW [None]
